FAERS Safety Report 4526744-9 (Version None)
Quarter: 2004Q4

REPORT INFORMATION
  Report Type: 
  Country: None (occurrence: None)
  Receive Date: 20041213
  Receipt Date: 20041129
  Transmission Date: 20050328
  Serious: Yes (Other)
  Sender: FDA-Public Use
  Company Number: 04-000851

PATIENT
  Age: 52 Year
  Sex: Female
  Weight: 71.7 kg

DRUGS (1)
  1. FEMRING [Suspect]
     Indication: HORMONE REPLACEMENT THERAPY
     Dosage: MG, QD, VAGINAL
     Route: 067
     Dates: start: 20031201, end: 20040315

REACTIONS (5)
  - BLOOD PRESSURE INCREASED [None]
  - CEREBROVASCULAR ACCIDENT [None]
  - HYPERVENTILATION [None]
  - MULTIPLE SCLEROSIS [None]
  - TRANSIENT ISCHAEMIC ATTACK [None]
